FAERS Safety Report 18550103 (Version 1)
Quarter: 2020Q4

REPORT INFORMATION
  Report Type: Spontaneous
  Country: GB (occurrence: GB)
  Receive Date: 20201126
  Receipt Date: 20201126
  Transmission Date: 20210114
  Serious: Yes (Other)
  Sender: FDA-Public Use
  Company Number: GB-PFIZER INC-2020462237

PATIENT
  Age: 51 Year
  Sex: Female
  Weight: 63 kg

DRUGS (8)
  1. MAGNESIUM SULFATE. [Suspect]
     Active Substance: MAGNESIUM SULFATE
     Indication: HYPOMAGNESAEMIA
     Dosage: 5 G, OVER 2 HOURS; STRENGTH: 25G IN 50ML
     Route: 065
     Dates: start: 20201027, end: 20201027
  2. SORAFENIB [Concomitant]
     Active Substance: SORAFENIB
     Indication: BLOOD DISORDER
     Dosage: UNK
     Route: 065
  3. OMEPRAZOLE. [Concomitant]
     Active Substance: OMEPRAZOLE
     Indication: BLOOD DISORDER
     Dosage: UNK
     Route: 065
  4. FOSCARNET [Concomitant]
     Active Substance: FOSCARNET
     Indication: BLOOD DISORDER
     Dosage: UNK
     Route: 065
  5. PENICILLIN V [PHENOXYMETHYLPENICILLIN] [Concomitant]
     Active Substance: PENICILLIN V
     Indication: BLOOD DISORDER
     Dosage: UNK
     Route: 065
  6. CICLOSPORIN [Concomitant]
     Active Substance: CYCLOSPORINE
     Indication: BLOOD DISORDER
     Dosage: UNK
     Route: 065
  7. BACTERIOSTATIC SODIUM CHLORIDE [Suspect]
     Active Substance: SODIUM CHLORIDE
     Indication: MEDICATION DILUTION
     Dosage: 250 ML, OVER 2 HOURS
     Route: 065
     Dates: start: 20201027, end: 20201027
  8. CYCLIZINE [Concomitant]
     Active Substance: CYCLIZINE
     Indication: BLOOD DISORDER
     Dosage: UNK
     Route: 065

REACTIONS (4)
  - Peripheral swelling [Recovered/Resolved]
  - Swelling face [Recovered/Resolved]
  - Urticaria [Recovered/Resolved]
  - Rash macular [Recovered/Resolved]

NARRATIVE: CASE EVENT DATE: 20201027
